FAERS Safety Report 8460216-4 (Version None)
Quarter: 2012Q2

REPORT INFORMATION
  Report Type: 
  Country: None (occurrence: None)
  Receive Date: 20120323
  Receipt Date: 20111116
  Transmission Date: 20120825
  Serious: Yes (Hospitalization, Other)
  Sender: FDA-Public Use
  Company Number: 163-21880-11092545

PATIENT
  Age: 35 Year
  Sex: Male

DRUGS (6)
  1. ALLOPURINOL [Concomitant]
  2. ZOLOFT [Concomitant]
  3. REVLIMID [Suspect]
     Indication: MULTIPLE MYELOMA
     Dosage: 25 MG, 1 IN 1 D, PO, 25 MG, DAILY FOR 21 DAYS, PO
     Route: 048
     Dates: start: 20110909
  4. REVLIMID [Suspect]
     Indication: MULTIPLE MYELOMA
     Dosage: 25 MG, 1 IN 1 D, PO, 25 MG, DAILY FOR 21 DAYS, PO
     Route: 048
     Dates: start: 20110412, end: 20110420
  5. THALOMID [Suspect]
     Indication: MULTIPLE MYELOMA
     Dosage: 100 MG, 1 IN 1 D, PO
     Route: 048
     Dates: start: 20110124, end: 20110411
  6. LYRICA [Concomitant]

REACTIONS (1)
  - PULMONARY EMBOLISM [None]
